FAERS Safety Report 5378815-5 (Version None)
Quarter: 2007Q2

REPORT INFORMATION
  Report Type: 
  Country: None (occurrence: None)
  Receive Date: 20070530
  Receipt Date: 20070227
  Transmission Date: 20071010
  Serious: No
  Sender: FDA-Public Use
  Company Number: 2007PV030753

PATIENT
  Age: 78 Year
  Sex: Female

DRUGS (6)
  1. BYETTA [Suspect]
     Indication: DIABETES MELLITUS NON-INSULIN-DEPENDENT
     Dosage: 10 MCG; BID; SC; 5 MCG; BID;SC
     Route: 058
     Dates: start: 20060201, end: 20060301
  2. BYETTA [Suspect]
     Indication: DIABETES MELLITUS NON-INSULIN-DEPENDENT
     Dosage: 10 MCG; BID; SC; 5 MCG; BID;SC
     Route: 058
     Dates: start: 20060301
  3. METFORMIN HCL [Concomitant]
  4. GLUCOTROL [Concomitant]
  5. ATENOLOL [Concomitant]
  6. DIOVAN [Concomitant]

REACTIONS (2)
  - BLOOD GLUCOSE DECREASED [None]
  - BLOOD PRESSURE DECREASED [None]
